FAERS Safety Report 9355468 (Version 2)
Quarter: 2013Q3

REPORT INFORMATION
  Report Type: Spontaneous
  Country: FR (occurrence: FR)
  Receive Date: 20130619
  Receipt Date: 20130708
  Transmission Date: 20140515
  Serious: Yes (Life-Threatening)
  Sender: FDA-Public Use
  Company Number: FR-PFIZER INC-2013180213

PATIENT
  Age: 31 Year
  Sex: Male

DRUGS (5)
  1. ZYVOXID [Suspect]
     Indication: LUNG DISORDER
     Dosage: 600 MG, 2X/DAY
     Route: 048
     Dates: start: 20130426, end: 20130522
  2. TAZOCILLINE [Suspect]
     Indication: LUNG DISORDER
     Dosage: PIPERACILLIN 4 G, TAZOBACTAM 500 MG, 3X/DAY
     Route: 041
     Dates: start: 20130503, end: 20130523
  3. FLAGYL [Suspect]
     Dosage: 500 MG, 3X/DAY
     Route: 048
     Dates: start: 20130423, end: 20130612
  4. PARKINANE LP [Suspect]
     Indication: SCHIZOPHRENIA
     Dosage: 5 MG, 1X/DAY
     Route: 048
  5. ZUCLOPENTHIXOL [Suspect]
     Indication: SCHIZOPHRENIA
     Dosage: 4 DF, DAILY
     Route: 048

REACTIONS (1)
  - Febrile neutropenia [Recovered/Resolved]
